FAERS Safety Report 4893733-4 (Version None)
Quarter: 2006Q1

REPORT INFORMATION
  Report Type: 
  Country: None (occurrence: None)
  Receive Date: 20060127
  Receipt Date: 20060124
  Transmission Date: 20060701
  Serious: Yes (Hospitalization)
  Sender: FDA-Public Use
  Company Number: AU-GLAXOSMITHKLINE-B0407721A

PATIENT
  Age: 11 Month
  Sex: Female

DRUGS (1)
  1. SERETIDE [Suspect]
     Indication: WHEEZING
     Dosage: 1PUFF TWICE PER DAY

REACTIONS (1)
  - APNOEA [None]
